FAERS Safety Report 5590568-4 (Version None)
Quarter: 2008Q1

REPORT INFORMATION
  Report Type: 
  Country: None (occurrence: None)
  Receive Date: 20080114
  Receipt Date: 20080102
  Transmission Date: 20080703
  Serious: Yes (Hospitalization)
  Sender: FDA-Public Use
  Company Number: ZW-GILEAD-2007-0013040

PATIENT
  Age: 33 Year
  Sex: Female

DRUGS (3)
  1. TRUVADA [Suspect]
     Indication: HIV INFECTION
     Route: 048
     Dates: start: 20070918
  2. TRUVADA [Suspect]
     Route: 048
     Dates: start: 20070619, end: 20070727
  3. NEVIRAPINE [Suspect]
     Indication: HIV INFECTION
     Route: 048
     Dates: start: 20070619, end: 20070727

REACTIONS (1)
  - STEVENS-JOHNSON SYNDROME [None]
